FAERS Safety Report 19037054 (Version 2)
Quarter: 2021Q4

REPORT INFORMATION
  Report Type: Other
  Country: IT (occurrence: None)
  Receive Date: 20210322
  Receipt Date: 20211111
  Transmission Date: 20220303
  Serious: Yes (Other)
  Sender: FDA-Public Use
  Company Number: IT-ROCHE-2637805

PATIENT

DRUGS (7)
  1. TOCILIZUMAB [Suspect]
     Active Substance: TOCILIZUMAB
     Indication: COVID-19 pneumonia
     Route: 042
  2. TOCILIZUMAB [Suspect]
     Active Substance: TOCILIZUMAB
     Indication: COVID-19 pneumonia
     Route: 058
  3. HYDROXYCHLOROQUINE [Concomitant]
     Active Substance: HYDROXYCHLOROQUINE
  4. AZITHROMYCIN [Concomitant]
     Active Substance: AZITHROMYCIN
  5. LOPINAVIR\RITONAVIR [Concomitant]
     Active Substance: LOPINAVIR\RITONAVIR
  6. DARUNAVIR [Concomitant]
     Active Substance: DARUNAVIR
  7. COBICISTAT [Concomitant]
     Active Substance: COBICISTAT

REACTIONS (12)
  - Neutropenia [Unknown]
  - Sepsis [Unknown]
  - Pneumonia bacterial [Unknown]
  - Systemic candida [Unknown]
  - Pneumocystis jirovecii pneumonia [Unknown]
  - Aspergillus infection [Unknown]
  - Hepatitis B reactivation [Unknown]
  - Injection site reaction [Unknown]
  - Aspartate aminotransferase increased [Unknown]
  - Urinary tract infection [Unknown]
  - Herpes simplex reactivation [Unknown]
  - Off label use [Unknown]
